FAERS Safety Report 20040064 (Version 3)
Quarter: 2022Q1

REPORT INFORMATION
  Report Type: Report from Study
  Country: CH (occurrence: CH)
  Receive Date: 20211106
  Receipt Date: 20220215
  Transmission Date: 20220423
  Serious: Yes (Hospitalization)
  Sender: FDA-Public Use
  Company Number: CH-TEVA-2021-CH-1973389

PATIENT
  Age: 50 Year
  Sex: Female

DRUGS (5)
  1. AJOVY [Suspect]
     Active Substance: FREMANEZUMAB-VFRM
     Dosage: 675MG ONCE QUATERLY
     Route: 058
     Dates: start: 20210608
  2. FLUOXETINE HYDROCHLORIDE [Concomitant]
     Active Substance: FLUOXETINE HYDROCHLORIDE
     Indication: Depression
     Dosage: 40 MILLIGRAM/MILLILITERS DAILY;
     Route: 048
  3. XANAX [Concomitant]
     Active Substance: ALPRAZOLAM
     Indication: Depression
     Dosage: 4 MILLIGRAM DAILY;
     Route: 048
  4. Tossina [Concomitant]
     Indication: Migraine
     Dosage: NEUROLOGY DECISION
     Route: 058
     Dates: start: 20210620
  5. NORFLOXACIN [Concomitant]
     Active Substance: NORFLOXACIN
     Indication: Haemorrhage
     Dosage: 400 MILLIGRAM DAILY;
     Route: 048
     Dates: start: 20210816, end: 20210822

REACTIONS (1)
  - Uterine leiomyoma [Recovered/Resolved]

NARRATIVE: CASE EVENT DATE: 20210816
